FAERS Safety Report 19478631 (Version 1)
Quarter: 2021Q2

REPORT INFORMATION
  Report Type: Spontaneous
  Country: AU (occurrence: AU)
  Receive Date: 20210630
  Receipt Date: 20210630
  Transmission Date: 20210717
  Serious: Yes (Hospitalization)
  Sender: FDA-Public Use
  Company Number: AU-ASTRAZENECA-2021A551100

PATIENT

DRUGS (2)
  1. PREDNISONE. [Concomitant]
     Active Substance: PREDNISONE
  2. FASENRA [Suspect]
     Active Substance: BENRALIZUMAB
     Route: 058
     Dates: start: 20210601

REACTIONS (10)
  - Viral infection [Unknown]
  - Anaphylactic reaction [Unknown]
  - C-reactive protein increased [Unknown]
  - Body temperature abnormal [Unknown]
  - Productive cough [Unknown]
  - Tremor [Unknown]
  - Lethargy [Unknown]
  - Dyspnoea [Unknown]
  - Troponin increased [Unknown]
  - Feeling cold [Unknown]
